FAERS Safety Report 5101384-1 (Version None)
Quarter: 2006Q3

REPORT INFORMATION
  Report Type: 
  Country: None (occurrence: None)
  Receive Date: 20060906
  Receipt Date: 20060825
  Transmission Date: 20061208
  Serious: Yes (Life-Threatening, Hospitalization, Congenital Anomaly, Other)
  Sender: FDA-Public Use
  Company Number: GXKR2006AR05274

PATIENT
  Sex: Female

DRUGS (2)
  1. THIAMAZOLE (NGX) (THIAMAZOLE) [Suspect]
     Dosage: TRANSPLACENTAL
     Route: 064
  2. LEVOTHYROXINE SODIUM [Concomitant]

REACTIONS (5)
  - CAESAREAN SECTION [None]
  - CHOANAL ATRESIA [None]
  - DRUG EXPOSURE DURING PREGNANCY [None]
  - NEONATAL RESPIRATORY DISTRESS SYNDROME [None]
  - PREMATURE BABY [None]
